FAERS Safety Report 24208449 (Version 1)
Quarter: 2024Q3

REPORT INFORMATION
  Report Type: Spontaneous
  Country: US (occurrence: US)
  Receive Date: 20240814
  Receipt Date: 20240814
  Transmission Date: 20241017
  Serious: No
  Sender: BIOGEN
  Company Number: US-BIOGEN-2017BI00423724

PATIENT
  Age: 36 Year
  Sex: Female

DRUGS (2)
  1. TECFIDERA [Suspect]
     Active Substance: DIMETHYL FUMARATE
     Indication: Multiple sclerosis
     Dosage: MAINTENANCE DOSE
     Route: 050
     Dates: start: 20161215, end: 20210110
  2. TECFIDERA [Suspect]
     Active Substance: DIMETHYL FUMARATE
     Route: 050
     Dates: start: 20140826

REACTIONS (2)
  - Product dose omission issue [Not Recovered/Not Resolved]
  - Flushing [Recovered/Resolved]

NARRATIVE: CASE EVENT DATE: 20140826
